FAERS Safety Report 7831789-7 (Version None)
Quarter: 2011Q4

REPORT INFORMATION
  Report Type: 
  Country: None (occurrence: None)
  Receive Date: 20111021
  Receipt Date: 20111019
  Transmission Date: 20120403
  Serious: Yes (Other)
  Sender: FDA-Public Use
  Company Number: CA-PFIZER INC-2011238712

PATIENT
  Age: 77 Year
  Sex: Female

DRUGS (8)
  1. VITALUX [Concomitant]
     Dosage: UNK
  2. VITAMIN D [Concomitant]
     Indication: OSTEOPOROSIS
     Dosage: 1000 IU, PER DAY
  3. SYNTHROID [Concomitant]
     Indication: THYROID DISORDER
     Dosage: 75 MG, 1X/DAY
  4. GLUCOSAMINE SULFATE [Concomitant]
     Indication: OSTEOPOROSIS
     Dosage: 2 TABS 4-5 TIMES PER DAY
  5. CALCIUM CARBONATE [Concomitant]
     Dosage: 2 TABS OF 600MG PER DAY
  6. IRON [Concomitant]
     Dosage: 2 TABS OF 300MG PER DAY
  7. XALATAN [Suspect]
     Indication: GLAUCOMA
     Dosage: 1 GTT IN EACH EYE AT BEDTIME
     Route: 047
     Dates: start: 20111004
  8. COD-LIVER OIL [Concomitant]
     Dosage: 1 CAP DAILY

REACTIONS (3)
  - EYELID PTOSIS [None]
  - EYE PAIN [None]
  - EYE IRRITATION [None]
